FAERS Safety Report 5330566-9 (Version None)
Quarter: 2007Q2

REPORT INFORMATION
  Report Type: 
  Country: None (occurrence: None)
  Receive Date: 20070516
  Receipt Date: 20070503
  Transmission Date: 20071010
  Serious: Yes (Death)
  Sender: FDA-Public Use
  Company Number: B0470413A

PATIENT
  Age: 52 Year
  Sex: Male

DRUGS (3)
  1. BUSULPHAN (FORMULATION UNKNOWN) (BUSULFAN) (GENERIC) [Suspect]
     Indication: CENTRAL NERVOUS SYSTEM LYMPHOMA
     Dosage: FOUR TIMES PER DAY / ORAL
     Route: 048
  2. THIOTEPA [Suspect]
     Indication: CENTRAL NERVOUS SYSTEM LYMPHOMA
     Dosage: 5 MG/KG
  3. FILGRASTIM [Concomitant]

REACTIONS (2)
  - MULTI-ORGAN FAILURE [None]
  - SEPSIS [None]
